FAERS Safety Report 18160482 (Version 2)
Quarter: 2020Q3

REPORT INFORMATION
  Report Type: Spontaneous
  Country: DE (occurrence: DE)
  Receive Date: 20200818
  Receipt Date: 20200903
  Transmission Date: 20201103
  Serious: No
  Sender: FDA-Public Use
  Company Number: DE-ALK-ABELLO A/S-2020AA002442

PATIENT

DRUGS (11)
  1. FUROSEMIDE. [Concomitant]
     Active Substance: FUROSEMIDE
     Dosage: 125 MILLIGRAM
     Route: 048
  2. ALLOPURINOL. [Concomitant]
     Active Substance: ALLOPURINOL
     Dosage: 100 MILLIGRAM TABLETS 2 TIMES PER WEEK
  3. ITULAZAX [Suspect]
     Active Substance: BETULA PENDULA POLLEN
     Indication: SEASONAL ALLERGY
     Dosage: 12 SQ?BET
     Route: 060
     Dates: start: 20200714, end: 20200721
  4. AMLODIPINE [Concomitant]
     Active Substance: AMLODIPINE BESYLATE
     Indication: HYPERTENSION
     Dosage: 5 MILLIGRAM
     Route: 048
  5. DREISAVIT N [Concomitant]
     Dosage: UNK TAB (MONDAY, WEDNESDAY, FRIDAY)
  6. ALFACALCIDOL [Concomitant]
     Active Substance: ALFACALCIDOL
     Dosage: 0.75 MICROGRAM (ON MONDAY, WEDNESDAY, FRIDAY)
     Route: 048
  7. DEKRISTOL [Concomitant]
     Active Substance: CHOLECALCIFEROL
     Dosage: 20000 IU (1 ON MONDAY, EVERY 2 WEEKS)
     Route: 048
  8. ACARIZAX [Suspect]
     Active Substance: DERMATOPHAGOIDES FARINAE\DERMATOPHAGOIDES PTERONYSSINUS
     Indication: MITE ALLERGY
     Dosage: 12 SQ?HDM
     Route: 060
     Dates: start: 20200714, end: 20200721
  9. NOVAMINSULFON [Concomitant]
     Active Substance: METAMIZOLE
     Dosage: 500 UNIT UNNOWN, TAB, PRN
  10. FOSINOPRIL [Concomitant]
     Active Substance: FOSINOPRIL
     Indication: HYPERTENSION
     Dosage: 20 MILLIGRAM
     Route: 048
  11. ATMADISC [Concomitant]
     Active Substance: FLUTICASONE PROPIONATE\SALMETEROL XINAFOATE
     Indication: ASTHMA
     Dosage: 25 MICROGRAM
     Route: 055

REACTIONS (5)
  - Product administered to patient of inappropriate age [Recovered/Resolved]
  - Palatal swelling [Recovered/Resolved]
  - Swollen tongue [Recovered/Resolved]
  - Off label use [Recovered/Resolved]
  - Hypersensitivity [Recovered/Resolved]

NARRATIVE: CASE EVENT DATE: 20200714
